FAERS Safety Report 23765293 (Version 1)
Quarter: 2024Q2

REPORT INFORMATION
  Report Type: Spontaneous
  Country: GB (occurrence: GB)
  Receive Date: 20240420
  Receipt Date: 20240420
  Transmission Date: 20240716
  Serious: Yes (Other)
  Sender: FDA-Public Use
  Company Number: None

PATIENT
  Age: 43 Year
  Sex: Female
  Weight: 63 kg

DRUGS (1)
  1. LEVOTHYROXINE [Suspect]
     Active Substance: LEVOTHYROXINE\LEVOTHYROXINE SODIUM
     Indication: Hypothyroidism
     Dosage: 100 MICROGRAM ONE PER DAY ON EMPTY STOMACH 30 MINS BEFORE FOOD/CAFFEINE/MEDS
     Dates: start: 20240302

REACTIONS (10)
  - Medication error [Unknown]
  - Pruritus [Recovering/Resolving]
  - Abdominal pain upper [Recovered/Resolved]
  - Heart rate [Recovering/Resolving]
  - Dizziness [Recovered/Resolved]
  - Headache [Recovered/Resolved]
  - Lethargy [Recovered/Resolved]
  - Nausea [Recovered/Resolved]
  - Arthralgia [Recovering/Resolving]
  - Myalgia [Recovered/Resolved]

NARRATIVE: CASE EVENT DATE: 20240403
